FAERS Safety Report 20599276 (Version 1)
Quarter: 2022Q1

REPORT INFORMATION
  Report Type: Spontaneous
  Country: US (occurrence: US)
  Receive Date: 20220315
  Receipt Date: 20220315
  Transmission Date: 20220423
  Serious: No
  Sender: FDA-Public Use
  Company Number: US-SANOFI-01009155

PATIENT

DRUGS (2)
  1. CEREZYME [Suspect]
     Active Substance: IMIGLUCERASE
     Dosage: UNK UNK, QOW
     Route: 065
  2. CEREZYME [Suspect]
     Active Substance: IMIGLUCERASE
     Dosage: UNK UNK, Q3W
     Route: 065

REACTIONS (1)
  - Inappropriate schedule of product administration [Unknown]
